FAERS Safety Report 10215284 (Version 2)
Quarter: 2014Q2

REPORT INFORMATION
  Report Type: Not Available
  Country: US (occurrence: US)
  Receive Date: 20140603
  Receipt Date: 20140616
  Transmission Date: 20141212
  Serious: Yes (Hospitalization)
  Sender: FDA-Public Use
  Company Number: US-ONYX-2014-1216

PATIENT
  Age: 73 Year
  Sex: Male

DRUGS (1)
  1. KYPROLIS [Suspect]
     Indication: PLASMA CELL MYELOMA
     Route: 042
     Dates: start: 20140520, end: 20140520

REACTIONS (4)
  - Atrial fibrillation [Recovered/Resolved]
  - Renal disorder [Recovered/Resolved]
  - Pancreatic disorder [Recovered/Resolved]
  - Skin reaction [Recovering/Resolving]
